FAERS Safety Report 5848490-1 (Version None)
Quarter: 2008Q3

REPORT INFORMATION
  Report Type: 
  Country: None (occurrence: None)
  Receive Date: 20080814
  Receipt Date: 20080808
  Transmission Date: 20090109
  Serious: Yes (Death)
  Sender: FDA-Public Use
  Company Number: TCI2008A02473

PATIENT
  Age: 61 Year
  Sex: Male

DRUGS (5)
  1. ACTOS [Suspect]
     Indication: TYPE 2 DIABETES MELLITUS
     Dosage: 15 MG (15 MG, 1 IN 1 D) PER ORAL
     Route: 048
     Dates: start: 20070724
  2. AMARYL [Concomitant]
  3. CRESTOR [Concomitant]
  4. ELPINAN (EPINASTINE HYDROCHLORIDE) [Concomitant]
  5. NITRENAL (NITRENIDIPINE) [Concomitant]

REACTIONS (9)
  - BRAIN NATRIURETIC PEPTIDE INCREASED [None]
  - CARDIAC FAILURE [None]
  - CHEST X-RAY ABNORMAL [None]
  - COUGH [None]
  - DIABETES MELLITUS INADEQUATE CONTROL [None]
  - DYSPNOEA [None]
  - OEDEMA PERIPHERAL [None]
  - SILENT MYOCARDIAL INFARCTION [None]
  - TACHYCARDIA [None]
